FAERS Safety Report 8243430-2 (Version None)
Quarter: 2012Q1

REPORT INFORMATION
  Report Type: 
  Country: None (occurrence: None)
  Receive Date: 20120329
  Receipt Date: 20120322
  Transmission Date: 20120608
  Serious: Yes (Other)
  Sender: FDA-Public Use
  Company Number: US-UCBSA-053977

PATIENT
  Age: 60 Year
  Sex: Male

DRUGS (3)
  1. VIMPAT [Suspect]
     Indication: EPILEPSY
  2. ZONISAMIDE [Concomitant]
  3. VIMPAT [Suspect]

REACTIONS (3)
  - CEREBROVASCULAR ACCIDENT [None]
  - MYOCARDIAL INFARCTION [None]
  - VENTRICULAR TACHYCARDIA [None]
